FAERS Safety Report 8955366 (Version 1)
Quarter: 2012Q4

REPORT INFORMATION
  Report Type: Report from Study
  Country: ES (occurrence: ES)
  Receive Date: 20121207
  Receipt Date: 20121207
  Transmission Date: 20130627
  Serious: Yes (Hospitalization, Other)
  Sender: FDA-Public Use
  Company Number: ES-ABBOTT-12P-144-1014355-00

PATIENT
  Age: 30 Year
  Sex: Female
  Weight: 64 kg

DRUGS (4)
  1. HUMIRA [Suspect]
     Indication: BEHCET^S SYNDROME
     Route: 058
     Dates: end: 20121102
  2. HEMOVAS [Concomitant]
     Indication: CARDIOVASCULAR DISORDER
     Route: 048
  3. PANTOPRAZOL [Concomitant]
     Indication: PROPHYLAXIS
     Route: 048
  4. PANTOPRAZOL [Concomitant]
     Indication: GASTRIC DISORDER

REACTIONS (6)
  - Wound haemorrhage [Unknown]
  - Appendicitis [Unknown]
  - Peritonitis [Unknown]
  - Purulent discharge [Unknown]
  - Abdominal pain [Unknown]
  - Wound complication [Unknown]
